FAERS Safety Report 4721953-8 (Version None)
Quarter: 2005Q3

REPORT INFORMATION
  Report Type: 
  Country: None (occurrence: None)
  Receive Date: 20050720
  Receipt Date: 20050707
  Transmission Date: 20060218
  Serious: Yes (Death)
  Sender: FDA-Public Use
  Company Number: GBWYE207217NOV04

PATIENT

DRUGS (4)
  1. GEMTUZUMAB OZOGAMICIN (GEMTUZUMAB OZOGAMICIN, INJECTION) [Suspect]
     Indication: ACUTE MYELOID LEUKAEMIA
  2. DAUNORUBICIN (DAUNORUBICIN), UNKNOWN, UNKNOWN [Concomitant]
  3. ARA-C (CYTARABINE), UNKNOWN, UNKNOWN [Concomitant]
  4. UNSPECIFIED ANTIBIOTIC (UNSPECIFIED ANTIBIOTIC) [Concomitant]

REACTIONS (2)
  - CEREBRAL HAEMORRHAGE [None]
  - PLATELET COUNT DECREASED [None]
